FAERS Safety Report 8211065-3 (Version None)
Quarter: 2012Q1

REPORT INFORMATION
  Report Type: 
  Country: None (occurrence: None)
  Receive Date: 20120315
  Receipt Date: 20120312
  Transmission Date: 20120608
  Serious: Yes (Death)
  Sender: FDA-Public Use
  Company Number: PHHY2012ML021727

PATIENT
  Sex: Male
  Weight: 85 kg

DRUGS (1)
  1. GLEEVEC [Suspect]
     Dosage: 400 MG, DAILY
     Route: 048
     Dates: start: 20091122

REACTIONS (11)
  - ASTHENIA [None]
  - DYSPNOEA [None]
  - DEATH [None]
  - BLOOD URIC ACID INCREASED [None]
  - PYREXIA [None]
  - ARTHRALGIA [None]
  - HAEMOGLOBIN DECREASED [None]
  - BONE PAIN [None]
  - PLATELET COUNT DECREASED [None]
  - WHITE BLOOD CELL COUNT INCREASED [None]
  - LYMPHOBLAST COUNT INCREASED [None]
